FAERS Safety Report 24445566 (Version 1)
Quarter: 2024Q4

REPORT INFORMATION
  Report Type: Spontaneous
  Country: US (occurrence: None)
  Receive Date: 20241016
  Receipt Date: 20241016
  Transmission Date: 20250115
  Serious: Yes (Other)
  Sender: Public
  Company Number: None

PATIENT
  Sex: Female

DRUGS (7)
  1. ORENCIA [Suspect]
     Active Substance: ABATACEPT
     Indication: Psoriatic arthropathy
     Route: 058
     Dates: start: 20240604
  2. COLLAGEN TAB ULTRA [Concomitant]
  3. MAGNESIUM TAB 400MG [Concomitant]
  4. MELATONIN CAP5MG [Concomitant]
  5. MULTIVITAMIN TAB ADLT 50+ [Concomitant]
  6. POTASSIUM GL TAB 550MG [Concomitant]
  7. PROBIOTIC CAP DAILY [Concomitant]

REACTIONS (3)
  - Loss of personal independence in daily activities [None]
  - Pain [None]
  - Therapy interrupted [None]
